FAERS Safety Report 17421454 (Version 2)
Quarter: 2020Q1

REPORT INFORMATION
  Report Type: Spontaneous
  Country: US (occurrence: US)
  Receive Date: 20200214
  Receipt Date: 20200219
  Transmission Date: 20200409
  Serious: Yes (Death, Life-Threatening, Other)
  Sender: FDA-Public Use
  Company Number: US-ROCHE-2547382

PATIENT
  Sex: Female

DRUGS (1)
  1. XOFLUZA [Suspect]
     Active Substance: BALOXAVIR MARBOXIL
     Indication: PRODUCT USED FOR UNKNOWN INDICATION
     Route: 065
     Dates: start: 20200115

REACTIONS (6)
  - Sepsis [Unknown]
  - Rheumatoid arthritis [Fatal]
  - Pneumonia bacterial [Fatal]
  - Chronic obstructive pulmonary disease [Fatal]
  - Autoimmune disorder [Unknown]
  - Influenza [Fatal]
